FAERS Safety Report 10883838 (Version 1)
Quarter: 2015Q1

REPORT INFORMATION
  Report Type: Spontaneous
  Country: JP (occurrence: JP)
  Receive Date: 20150304
  Receipt Date: 20150304
  Transmission Date: 20150721
  Serious: Yes (Other)
  Sender: FDA-Public Use
  Company Number: JP-AMGEN-JPNSP2015018365

PATIENT
  Age: 44 Year
  Sex: Female

DRUGS (1)
  1. RANMARK [Suspect]
     Active Substance: DENOSUMAB
     Indication: OSTEOSARCOMA
     Dosage: 120 MG, UNK
     Route: 065

REACTIONS (1)
  - Aphagia [Not Recovered/Not Resolved]
